FAERS Safety Report 6656276-3 (Version None)
Quarter: 2010Q1

REPORT INFORMATION
  Report Type: 
  Country: None (occurrence: None)
  Receive Date: 20100324
  Receipt Date: 20100309
  Transmission Date: 20100710
  Serious: Yes (Other)
  Sender: FDA-Public Use
  Company Number: B0641440A

PATIENT
  Age: 44 Year
  Sex: Female

DRUGS (1)
  1. ACYCLOVIR [Suspect]

REACTIONS (12)
  - ALLERGIC GRANULOMATOUS ANGIITIS [None]
  - AREFLEXIA [None]
  - ASCITES [None]
  - AXONAL NEUROPATHY [None]
  - MYOPATHY [None]
  - NECROSIS [None]
  - NEURALGIA [None]
  - PERICARDIAL EFFUSION [None]
  - PLEURAL EFFUSION [None]
  - RASH VESICULAR [None]
  - RENAL FAILURE [None]
  - SENSORY LOSS [None]
